FAERS Safety Report 7148413-1 (Version None)
Quarter: 2010Q4

REPORT INFORMATION
  Report Type: 
  Country: None (occurrence: None)
  Receive Date: 20101209
  Receipt Date: 20101203
  Transmission Date: 20110411
  Serious: Yes (Death, Hospitalization)
  Sender: FDA-Public Use
  Company Number: US-CELGENEUS-163-21880-10091302

PATIENT
  Sex: Male

DRUGS (1)
  1. REVLIMID [Suspect]
     Route: 048
     Dates: start: 20100809, end: 20100101

REACTIONS (1)
  - PNEUMONIA [None]
